FAERS Safety Report 4842079-9 (Version None)
Quarter: 2005Q4

REPORT INFORMATION
  Report Type: 
  Country: None (occurrence: None)
  Receive Date: 20051130
  Receipt Date: 20051118
  Transmission Date: 20060501
  Serious: Yes (Other)
  Sender: FDA-Public Use
  Company Number: PHBS2005FI17242

PATIENT
  Sex: Female

DRUGS (2)
  1. ZOMETA [Suspect]
     Dosage: 4 MG, ONCE/SINGLE
     Route: 065
     Dates: start: 20041101, end: 20041101
  2. ZOMETA [Suspect]
     Dosage: 4 MG, ONCE/SINGLE
     Route: 065
     Dates: start: 20050901, end: 20050901

REACTIONS (5)
  - BLOOD ALKALINE PHOSPHATASE INCREASED [None]
  - EYE DEGENERATIVE DISORDER [None]
  - EYE PAIN [None]
  - VISUAL ACUITY REDUCED [None]
  - VITH NERVE PARALYSIS [None]
